FAERS Safety Report 25902307 (Version 1)
Quarter: 2025Q4

REPORT INFORMATION
  Report Type: Spontaneous
  Country: US (occurrence: None)
  Receive Date: 20251008
  Receipt Date: 20251008
  Transmission Date: 20260118
  Serious: No
  Sender: FDA-CTU
  Company Number: None

PATIENT
  Sex: Male

DRUGS (3)
  1. ADVATE [Suspect]
     Active Substance: ANTIHEMOPHILIC FACTOR, HUMAN RECOMBINANT
     Indication: Factor VIII deficiency
     Dosage: OTHER STRENGTH : 250;?FREQUENCY : AS NEEDED;?OTHER ROUTE : SLOW IV PUSH;?
     Route: 050
     Dates: start: 20120712
  2. ADVATE [Suspect]
     Active Substance: ANTIHEMOPHILIC FACTOR, HUMAN RECOMBINANT
     Indication: Factor VIII deficiency
     Dosage: OTHER STRENGTH : 3000;?FREQUENCY : AS NEEDED;?OTHER ROUTE : SLOW IV PUSH;?
     Route: 050
     Dates: start: 20120712
  3. NORMAL SALINE FLUSH (10ML) [Concomitant]

REACTIONS (1)
  - Haemorrhage [None]
